FAERS Safety Report 15388477 (Version 1)
Quarter: 2018Q3

REPORT INFORMATION
  Report Type: Report from Study
  Country: BR (occurrence: BR)
  Receive Date: 20180915
  Receipt Date: 20180915
  Transmission Date: 20181010
  Serious: Yes (Other)
  Sender: FDA-Public Use
  Company Number: PHHY2018BR085474

PATIENT
  Sex: Female
  Weight: 80 kg

DRUGS (7)
  1. ENTRESTO [Suspect]
     Active Substance: SACUBITRIL\VALSARTAN
     Indication: CARDIAC FAILURE
     Dosage: 1 DF (51 MG, AS REPORTED), UNK
     Route: 048
  2. LASIX [Concomitant]
     Active Substance: FUROSEMIDE
     Indication: FLUID RETENTION
     Dosage: 1 DF, QD
     Route: 048
  3. ASA [Concomitant]
     Active Substance: ASPIRIN
     Indication: PRODUCT USED FOR UNKNOWN INDICATION
     Dosage: 1 DF, QD
     Route: 048
  4. TYLENOL [Concomitant]
     Active Substance: ACETAMINOPHEN
     Indication: ARTHRITIS
     Dosage: 2 DF, BID
     Route: 048
  5. ENTRESTO [Suspect]
     Active Substance: SACUBITRIL\VALSARTAN
     Dosage: 51 MG, QD (STOPPED AFTER 1 WEEK OF USE)
     Route: 048
  6. LIPITOR [Concomitant]
     Active Substance: ATORVASTATIN CALCIUM
     Indication: PRODUCT USED FOR UNKNOWN INDICATION
     Dosage: 20 MG, QD
     Route: 048
  7. ELIQUIS [Concomitant]
     Active Substance: APIXABAN
     Indication: ARRHYTHMIA
     Dosage: 2 DF, QD
     Route: 048

REACTIONS (10)
  - Tachycardia [Unknown]
  - Wrong technique in product usage process [Unknown]
  - Drug prescribing error [Unknown]
  - Blood pressure decreased [Unknown]
  - Fatigue [Recovering/Resolving]
  - Arrhythmia [Unknown]
  - Dizziness [Unknown]
  - Pain in extremity [Unknown]
  - Malaise [Unknown]
  - Spinal pain [Not Recovered/Not Resolved]
